FAERS Safety Report 5414820-8 (Version None)
Quarter: 2007Q3

REPORT INFORMATION
  Report Type: 
  Country: None (occurrence: None)
  Receive Date: 20070815
  Receipt Date: 20070810
  Transmission Date: 20080115
  Serious: Yes (Death, Congenital Anomaly)
  Sender: FDA-Public Use
  Company Number: HQWYE460305FEB07

PATIENT
  Sex: Male

DRUGS (5)
  1. EFFEXOR XR [Suspect]
     Indication: POSTPARTUM DEPRESSION
     Route: 064
     Dates: start: 20000101, end: 20060101
  2. EFFEXOR XR [Suspect]
     Dosage: ^ATTEMPTED TO TAPER OFF BUT WAS UNSUCCESSFUL AND CONTINUED ON THERAPY AT UNKNOWN DOSE^
     Route: 064
     Dates: start: 20060101
  3. RANITIDINE [Concomitant]
     Indication: GASTROOESOPHAGEAL REFLUX DISEASE
     Dosage: 300 MG DAILY ^ONLY WHEN NEEDED^
     Route: 064
  4. IRON [Concomitant]
     Indication: MEDICAL DIET
     Route: 064
  5. NEXIUM [Concomitant]
     Indication: GASTROOESOPHAGEAL REFLUX DISEASE
     Dosage: 40 MG BID ^ ONLY WHEN NEEDED^
     Route: 064

REACTIONS (2)
  - HYPOPLASTIC LEFT HEART SYNDROME [None]
  - MULTI-ORGAN FAILURE [None]
